FAERS Safety Report 8509525-0 (Version None)
Quarter: 2012Q3

REPORT INFORMATION
  Report Type: 
  Country: None (occurrence: None)
  Receive Date: 20120713
  Receipt Date: 20120709
  Transmission Date: 20120928
  Serious: Yes (Other)
  Sender: FDA-Public Use
  Company Number: US-PFIZER INC-2012165532

PATIENT
  Sex: Female
  Weight: 102 kg

DRUGS (14)
  1. VERAPAMIL [Concomitant]
     Dosage: 240 MG, DAILY
  2. LYRICA [Suspect]
     Indication: FIBROMYALGIA
     Dosage: 50 MG, 2X/DAY
  3. CLONIDINE [Concomitant]
     Indication: BLOOD PRESSURE ABNORMAL
     Dosage: 0.1MG IN THE MORNING AND 0.2MG AT NIGHT, 2X/DAY
  4. LOSARTAN POTASSIUM [Concomitant]
     Dosage: 100 MG, DAILY
  5. SPIRONOLACTONE [Concomitant]
     Indication: BLOOD PRESSURE ABNORMAL
     Dosage: 25 MG, UNK
  6. METFORMIN [Concomitant]
     Indication: DIABETES MELLITUS
     Dosage: UNK
  7. ROPINIROLE [Concomitant]
     Dosage: 0.5 MG, DAILY
  8. FISH OIL [Concomitant]
     Dosage: UNK,DAILY
  9. ZOLPIDEM TARTRATE [Concomitant]
     Dosage: 5 MG, DAILY
  10. ASPIRIN [Concomitant]
     Dosage: UNK, DAILY
  11. CYMBALTA [Concomitant]
     Dosage: UNK
  12. NOVOLOG [Concomitant]
     Indication: DIABETES MELLITUS
     Dosage: UNK
  13. MAGNESIUM [Concomitant]
     Dosage: UNK
  14. SIMVASTATIN [Concomitant]
     Dosage: 20 MG, UNK

REACTIONS (3)
  - CATARACT [None]
  - MOUTH ULCERATION [None]
  - CAROTID ARTERY OCCLUSION [None]
